FAERS Safety Report 11631922 (Version 2)
Quarter: 2019Q3

REPORT INFORMATION
  Report Type: Spontaneous
  Country: US (occurrence: US)
  Receive Date: 20151015
  Receipt Date: 20190828
  Transmission Date: 20191004
  Serious: Yes (Other)
  Sender: FDA-Public Use
  Company Number: US-BRISTOL-MYERS SQUIBB COMPANY-BMS-2015-068750

PATIENT
  Sex: Male

DRUGS (1)
  1. ELIQUIS [Suspect]
     Active Substance: APIXABAN
     Indication: EMBOLISM VENOUS
     Dosage: 5 MILLIGRAM, Q12H
     Route: 048
     Dates: start: 2015, end: 20190722

REACTIONS (3)
  - Appendix disorder [Unknown]
  - Procedural haemorrhage [Unknown]
  - Peripheral swelling [Not Recovered/Not Resolved]
